FAERS Safety Report 22598140 (Version 2)
Quarter: 2024Q2

REPORT INFORMATION
  Report Type: Spontaneous
  Country: US (occurrence: None)
  Receive Date: 20230614
  Receipt Date: 20240613
  Transmission Date: 20240716
  Serious: Yes (Hospitalization)
  Sender: FDA-Public Use
  Company Number: US-MDD US Operations-MDD202203-000528

PATIENT
  Age: 78 Year
  Sex: Male

DRUGS (3)
  1. APOKYN [Suspect]
     Active Substance: APOMORPHINE HYDROCHLORIDE
     Indication: Parkinson^s disease
     Route: 058
  2. APOKYN [Suspect]
     Active Substance: APOMORPHINE HYDROCHLORIDE
     Dosage: NOT PROVIDED
     Route: 058
  3. APOKYN [Suspect]
     Active Substance: APOMORPHINE HYDROCHLORIDE
     Route: 058
     Dates: start: 202111

REACTIONS (8)
  - Fall [Unknown]
  - Hip fracture [Unknown]
  - Fall [Unknown]
  - Hip fracture [Unknown]
  - Fall [Unknown]
  - Clavicle fracture [Unknown]
  - Loss of consciousness [Unknown]
  - Influenza [Recovered/Resolved]

NARRATIVE: CASE EVENT DATE: 20220320
